FAERS Safety Report 6457865-1 (Version None)
Quarter: 2009Q4

REPORT INFORMATION
  Report Type: 
  Country: None (occurrence: None)
  Receive Date: 20091125
  Receipt Date: 20090921
  Transmission Date: 20100525
  Serious: No
  Sender: FDA-Public Use
  Company Number: US-AMGEN-KDL361833

PATIENT
  Sex: Female
  Weight: 94.4 kg

DRUGS (2)
  1. ENBREL [Suspect]
     Indication: RHEUMATOID ARTHRITIS
     Route: 058
     Dates: start: 20001101
  2. METHOTREXATE [Concomitant]
     Route: 048

REACTIONS (4)
  - EAR INFECTION [None]
  - HYPERSENSITIVITY [None]
  - NAUSEA [None]
  - SINUSITIS [None]
